FAERS Safety Report 10269488 (Version 1)
Quarter: 2014Q3

REPORT INFORMATION
  Report Type: Spontaneous
  Country: US (occurrence: US)
  Receive Date: 20140701
  Receipt Date: 20140701
  Transmission Date: 20150326
  Serious: No
  Sender: FDA-Public Use
  Company Number: US-BIOGENIDEC-2014BI062590

PATIENT
  Sex: Female

DRUGS (3)
  1. COPAXONE [Concomitant]
     Active Substance: GLATIRAMER ACETATE
  2. REBIF [Concomitant]
     Active Substance: INTERFERON BETA-1A
  3. AVONEX [Suspect]
     Active Substance: INTERFERON BETA-1A
     Indication: PRODUCT USED FOR UNKNOWN INDICATION
     Route: 030

REACTIONS (7)
  - Skin burning sensation [Unknown]
  - Pruritus [Unknown]
  - Injection site pain [Recovered/Resolved]
  - Rash [Unknown]
  - Urticaria [Unknown]
  - Liver function test abnormal [Unknown]
  - Multiple sclerosis relapse [Unknown]
